FAERS Safety Report 7795630-3 (Version None)
Quarter: 2011Q4

REPORT INFORMATION
  Report Type: 
  Country: None (occurrence: None)
  Receive Date: 20111004
  Receipt Date: 20110930
  Transmission Date: 20120403
  Serious: Yes (Other)
  Sender: FDA-Public Use
  Company Number: US-GLAXOSMITHKLINE-A0946691A

PATIENT
  Age: 53 Year
  Sex: Male
  Weight: 113.2 kg

DRUGS (3)
  1. AVANDIA [Suspect]
     Indication: DIABETES MELLITUS
     Dosage: 4MG PER DAY
     Route: 048
     Dates: start: 20051226, end: 20061004
  2. STARLIX [Concomitant]
  3. AVANDAMET [Suspect]
     Indication: DIABETES MELLITUS
     Route: 048
     Dates: start: 20051226

REACTIONS (3)
  - CARDIAC FAILURE CONGESTIVE [None]
  - ISCHAEMIC CARDIOMYOPATHY [None]
  - MYOCARDIAL INFARCTION [None]
